FAERS Safety Report 8405788-0 (Version None)
Quarter: 2012Q2

REPORT INFORMATION
  Report Type: 
  Country: None (occurrence: None)
  Receive Date: 20120604
  Receipt Date: 20120530
  Transmission Date: 20120825
  Serious: No
  Sender: FDA-Public Use
  Company Number: US-PFIZER INC-2012130505

PATIENT
  Sex: Female
  Weight: 78.912 kg

DRUGS (8)
  1. LYRICA [Suspect]
     Indication: RESTLESS LEGS SYNDROME
     Dosage: 50 MG, DAILY
  2. ACETYLSALICYLIC ACID SRT [Suspect]
     Indication: CARDIAC DISORDER
     Dosage: 81 MG, UNK
  3. QUINAPRIL HCL [Suspect]
     Indication: HYPERTENSION
     Dosage: 10 MG, UNK
  4. PLAVIX [Suspect]
     Indication: ANTICOAGULANT THERAPY
     Dosage: 75 MG, DAILY
  5. MIRAPEX [Suspect]
     Indication: RESTLESS LEGS SYNDROME
     Dosage: 0.75 MG, DAILY
  6. ATIVAN [Suspect]
     Indication: INSOMNIA
  7. ATIVAN [Suspect]
     Indication: ANXIETY
     Dosage: 1 MG, DAILY
  8. SPIRONOLACTONE [Suspect]
     Indication: HYPERTENSION
     Dosage: 25 MG, UNK

REACTIONS (3)
  - OFF LABEL USE [None]
  - MUSCLE SPASMS [None]
  - PAIN IN EXTREMITY [None]
